FAERS Safety Report 7692314-7 (Version None)
Quarter: 2011Q3

REPORT INFORMATION
  Report Type: 
  Country: None (occurrence: None)
  Receive Date: 20110818
  Receipt Date: 20110808
  Transmission Date: 20111222
  Serious: Yes (Other)
  Sender: FDA-Public Use
  Company Number: PHHY2011DE71043

PATIENT
  Age: 73 Year
  Sex: Female
  Weight: 72 kg

DRUGS (4)
  1. ZOLEDRONOC ACID [Suspect]
     Indication: OSTEOPOROSIS
     Dosage: 5 MG, ONCE YEARLY
     Route: 042
     Dates: start: 20100429
  2. VITAMIN D [Concomitant]
     Indication: OSTEOPOROSIS
     Dosage: 1000 MG/ DAY
  3. CALCIUM CARBONATE [Concomitant]
     Indication: OSTEOPOROSIS
     Dosage: 1000 MG/DAY
  4. DICLOFENAC SODIUM [Concomitant]
     Indication: PAIN
     Dosage: UNK UKN, UNK

REACTIONS (1)
  - FEMORAL NECK FRACTURE [None]
